FAERS Safety Report 9659134 (Version 2)
Quarter: 2013Q4

REPORT INFORMATION
  Report Type: Spontaneous
  Country: NL (occurrence: NL)
  Receive Date: 20131031
  Receipt Date: 20131031
  Transmission Date: 20140711
  Serious: Yes (Other)
  Sender: FDA-Public Use
  Company Number: NL-ACTELION-A-CH2013-89564

PATIENT
  Age: 45 Year
  Sex: Female
  Weight: 65 kg

DRUGS (8)
  1. TRACLEER [Suspect]
     Indication: SKIN ULCER
     Dosage: 125 MG, BID
     Route: 048
     Dates: start: 20121208, end: 20130903
  2. TRACLEER [Suspect]
     Dosage: 62.5 MG, BID
     Route: 048
     Dates: start: 20121107, end: 20121207
  3. LEVOCETIRIZINE [Concomitant]
     Dosage: 5 MG, BID
     Route: 048
  4. TRAMADOL [Concomitant]
     Dosage: 50 MG, OD
  5. NIFEDIPINE [Concomitant]
     Dosage: 40 MG, BID
  6. ATORVASTATINE [Concomitant]
     Dosage: 40 MG, UNK
  7. PANTOZOL [Concomitant]
     Dosage: 40 MG, UNK
  8. ILOMEDIN [Concomitant]
     Dosage: UNK
     Dates: start: 2009

REACTIONS (14)
  - Hepatic enzyme abnormal [Unknown]
  - Alanine aminotransferase increased [Unknown]
  - Aspartate aminotransferase increased [Unknown]
  - Blood alkaline phosphatase increased [Unknown]
  - Gamma-glutamyltransferase increased [Unknown]
  - Blood bilirubin increased [Unknown]
  - Jaundice [Unknown]
  - Nausea [Unknown]
  - Chromaturia [Unknown]
  - Abdominal pain [Unknown]
  - Ocular icterus [Unknown]
  - Pruritus [Unknown]
  - Amylase increased [Unknown]
  - Lipase increased [Unknown]
